FAERS Safety Report 26116213 (Version 2)
Quarter: 2025Q4

REPORT INFORMATION
  Report Type: Report from Study
  Country: US (occurrence: US)
  Receive Date: 20251203
  Receipt Date: 20251212
  Transmission Date: 20260117
  Serious: Yes (Other)
  Sender: RHYTHM PHARMACEUTICALS
  Company Number: US-RHYTHM PHARMACEUTICALS, INC.-2025RHM000863

PATIENT

DRUGS (4)
  1. SETMELANOTIDE [Suspect]
     Active Substance: SETMELANOTIDE
     Indication: Laurence-Moon-Bardet-Biedl syndrome
     Dosage: 1 MILLIGRAM, QD
     Route: 058
     Dates: start: 20250825
  2. SETMELANOTIDE [Suspect]
     Active Substance: SETMELANOTIDE
     Dosage: 2 MILLIGRAM, QD
     Route: 058
  3. SETMELANOTIDE [Suspect]
     Active Substance: SETMELANOTIDE
     Dosage: 3 MILLIGRAM, QD
     Route: 058
  4. OLANZAPINE [Concomitant]
     Active Substance: OLANZAPINE
     Indication: Behaviour disorder

REACTIONS (5)
  - Intentional self-injury [Not Recovered/Not Resolved]
  - Anger [Not Recovered/Not Resolved]
  - Aggression [Not Recovered/Not Resolved]
  - Self-injurious ideation [Not Recovered/Not Resolved]
  - Food craving [Not Recovered/Not Resolved]
